FAERS Safety Report 9850936 (Version 1)
Quarter: 2014Q1

REPORT INFORMATION
  Report Type: Spontaneous
  Country: AU (occurrence: AU)
  Receive Date: 20140128
  Receipt Date: 20140128
  Transmission Date: 20141002
  Serious: Yes (Disabling, Other)
  Sender: FDA-Public Use
  Company Number: AU-ACTAVIS-2014-00687

PATIENT
  Age: 50 Year
  Sex: Male

DRUGS (4)
  1. OXALIPLATIN (UNKNOWN) [Suspect]
     Indication: COLON CANCER STAGE III
     Dosage: 85 MG/M2 (160 MG)PER CYCLE, FOR 12 CYCLES; CUMULATIVE
     Route: 042
  2. 5-FLUOROURACIL                     /00098801/ [Concomitant]
     Indication: COLON CANCER STAGE III
     Dosage: UNK
     Route: 065
  3. LEUCOVORIN                         /00566701/ [Concomitant]
     Indication: COLON CANCER STAGE III
     Dosage: UNK
     Route: 065
  4. GRANISETRON [Concomitant]
     Indication: PROPHYLAXIS OF NAUSEA AND VOMITING
     Dosage: UNK
     Route: 065

REACTIONS (2)
  - Neuralgia [Recovered/Resolved]
  - Dysaesthesia [Unknown]
